FAERS Safety Report 20196393 (Version 2)
Quarter: 2021Q4

REPORT INFORMATION
  Report Type: Spontaneous
  Country: US (occurrence: US)
  Receive Date: 20211216
  Receipt Date: 20211216
  Transmission Date: 20220304
  Serious: Yes (Other)
  Sender: FDA-Public Use
  Company Number: US-GILEAD-2021-0561379

PATIENT
  Sex: Female

DRUGS (4)
  1. RANEXA [Suspect]
     Active Substance: RANOLAZINE
     Indication: Angina pectoris
     Dosage: 1 DOSAGE FORM, QD; 1/2 TABLET
     Route: 048
     Dates: start: 20211210, end: 20211212
  2. RANEXA [Suspect]
     Active Substance: RANOLAZINE
     Dosage: 1 DOSAGE FORM, QD; 1 WHOLE TABLET
     Route: 048
     Dates: start: 20211213, end: 20211213
  3. RANEXA [Suspect]
     Active Substance: RANOLAZINE
     Dosage: 1 DOSAGE FORM, QD
     Route: 048
     Dates: start: 2011
  4. RANOLAZINE [Suspect]
     Active Substance: RANOLAZINE
     Indication: Angina pectoris
     Dosage: 1 DOSAGE FORM, QD
     Route: 048
     Dates: end: 20211209

REACTIONS (13)
  - Loss of consciousness [Unknown]
  - Urine output decreased [Unknown]
  - Eye swelling [Recovering/Resolving]
  - Somnolence [Unknown]
  - Chest pain [Recovering/Resolving]
  - Malaise [Recovering/Resolving]
  - Dyspnoea [Recovering/Resolving]
  - Pruritus [Recovering/Resolving]
  - Headache [Unknown]
  - Dizziness [Not Recovered/Not Resolved]
  - Product quality issue [Unknown]
  - Intentional product use issue [Unknown]
  - Wrong technique in product usage process [Unknown]

NARRATIVE: CASE EVENT DATE: 20110101
